FAERS Safety Report 7544519-3 (Version None)
Quarter: 2011Q2

REPORT INFORMATION
  Report Type: 
  Country: None (occurrence: None)
  Receive Date: 20110613
  Receipt Date: 20110607
  Transmission Date: 20111010
  Serious: Yes (Death)
  Sender: FDA-Public Use
  Company Number: FR-MERCK-1106FRA00011

PATIENT
  Age: 63 Year
  Sex: Female
  Weight: 120 kg

DRUGS (7)
  1. INSULIN ASPART, BIPHASIC ISOPHANE [INJECTION] [Concomitant]
     Indication: TYPE 2 DIABETES MELLITUS
     Route: 058
     Dates: end: 20110403
  2. FUROSEMIDE [Concomitant]
     Indication: HYPERTENSION
     Route: 065
     Dates: start: 20050101
  3. RAMIPRIL [Concomitant]
     Indication: HYPERTENSION
     Route: 065
     Dates: start: 20000101
  4. [THERAPY UNSPECIFIED] [Concomitant]
     Indication: DYSLIPIDAEMIA
     Route: 065
  5. [THERAPY UNSPECIFIED] [Concomitant]
     Indication: RENAL FAILURE
     Route: 065
  6. PERINDOPRIL ARGININE [Concomitant]
     Indication: HYPERTENSION
     Route: 065
     Dates: start: 20070101
  7. JANUVIA [Suspect]
     Indication: TYPE 2 DIABETES MELLITUS
     Route: 048
     Dates: start: 20100223, end: 20110403

REACTIONS (2)
  - RUPTURED CEREBRAL ANEURYSM [None]
  - HYPOGLYCAEMIA [None]
